FAERS Safety Report 6885214-3 (Version None)
Quarter: 2010Q3

REPORT INFORMATION
  Report Type: 
  Country: None (occurrence: None)
  Receive Date: 20100727
  Receipt Date: 20100715
  Transmission Date: 20110219
  Serious: Yes (Other)
  Sender: FDA-Public Use
  Company Number: AT-BAXTER-2010BH019064

PATIENT
  Age: 55 Year
  Sex: Male
  Weight: 66 kg

DRUGS (2)
  1. ENDOXAN BAXTER [Suspect]
     Indication: PANCREATIC CARCINOMA METASTATIC
     Route: 048
  2. ENDOXAN BAXTER [Suspect]
     Indication: OFF LABEL USE
     Route: 048

REACTIONS (3)
  - ANGIOEDEMA [None]
  - DERMATITIS BULLOUS [None]
  - ERYTHEMA [None]
